FAERS Safety Report 19058914 (Version 14)
Quarter: 2021Q3

REPORT INFORMATION
  Report Type: Report from Study
  Country: FR (occurrence: FR)
  Receive Date: 20210325
  Receipt Date: 20210913
  Transmission Date: 20211014
  Serious: Yes (Hospitalization)
  Sender: FDA-Public Use
  Company Number: FR-EISAI MEDICAL RESEARCH-EC-2021-090186

PATIENT
  Age: 72 Year
  Sex: Male
  Weight: 107 kg

DRUGS (13)
  1. ROSUVASTATINE [Concomitant]
     Active Substance: ROSUVASTATIN
     Dates: start: 201901
  2. PEMBROLIZUMAB. [Suspect]
     Active Substance: PEMBROLIZUMAB
     Route: 041
     Dates: start: 20210609
  3. NALTREXONE [Concomitant]
     Active Substance: NALTREXONE
     Dates: start: 202007
  4. FUROSEMIDE. [Concomitant]
     Active Substance: FUROSEMIDE
     Dates: start: 201901
  5. PREGABALIN. [Concomitant]
     Active Substance: PREGABALIN
     Dates: start: 201901
  6. LENVATINIB [Suspect]
     Active Substance: LENVATINIB
     Indication: HEPATOCELLULAR CARCINOMA
     Route: 048
     Dates: start: 20201203, end: 20210315
  7. KARDEGIC [Concomitant]
     Active Substance: ASPIRIN DL-LYSINE
     Dates: start: 201901
  8. TRIMEPRAZINE TARTRATE [Concomitant]
     Active Substance: TRIMEPRAZINE TARTRATE
     Dates: start: 201901
  9. METFORMIN [Concomitant]
     Active Substance: METFORMIN HYDROCHLORIDE
     Dates: start: 20200924
  10. PEMBROLIZUMAB. [Suspect]
     Active Substance: PEMBROLIZUMAB
     Indication: HEPATOCELLULAR CARCINOMA
     Route: 041
     Dates: start: 20201203, end: 20201203
  11. PEMBROLIZUMAB. [Suspect]
     Active Substance: PEMBROLIZUMAB
     Route: 041
     Dates: start: 20210113, end: 20210113
  12. PEMBROLIZUMAB. [Suspect]
     Active Substance: PEMBROLIZUMAB
     Route: 041
     Dates: start: 20210225, end: 20210225
  13. BACLOFEN. [Concomitant]
     Active Substance: BACLOFEN
     Dates: start: 202007

REACTIONS (2)
  - Arthritis [Recovered/Resolved with Sequelae]
  - Skin ulcer [Recovered/Resolved]

NARRATIVE: CASE EVENT DATE: 20210101
